FAERS Safety Report 5532129-9 (Version None)
Quarter: 2007Q4

REPORT INFORMATION
  Report Type: 
  Country: None (occurrence: None)
  Receive Date: 20071130
  Receipt Date: 20071130
  Transmission Date: 20080405
  Serious: Yes (Life-Threatening, Hospitalization)
  Sender: FDA-Public Use
  Company Number: None

PATIENT
  Sex: Female
  Weight: 68.9 kg

DRUGS (5)
  1. BEVACIZUMAB (GENENTECH) [Suspect]
     Indication: BREAST CANCER METASTATIC
     Dosage: 630MG QD WK IV
     Route: 042
     Dates: start: 20070914
  2. BEVACIZUMAB (GENENTECH) [Suspect]
     Indication: BREAST CANCER METASTATIC
     Dosage: 630MG QD WK IV
     Route: 042
     Dates: start: 20071002
  3. BEVACIZUMAB (GENENTECH) [Suspect]
     Indication: BREAST CANCER METASTATIC
     Dosage: 630MG QD WK IV
     Route: 042
     Dates: start: 20071009
  4. BEVACIZUMAB (GENENTECH) [Suspect]
     Indication: BREAST CANCER METASTATIC
     Dosage: 630MG QD WK IV
     Route: 042
     Dates: start: 20071022
  5. BEVACIZUMAB (GENENTECH) [Suspect]
     Indication: BREAST CANCER METASTATIC
     Dosage: 630MG QD WK IV
     Route: 042
     Dates: start: 20071105

REACTIONS (4)
  - ASCITES [None]
  - HEPATIC FAILURE [None]
  - HEPATOMEGALY [None]
  - PROTHROMBIN TIME PROLONGED [None]
